FAERS Safety Report 10602457 (Version 2)
Quarter: 2014Q4

REPORT INFORMATION
  Report Type: Spontaneous
  Country: FR (occurrence: FR)
  Receive Date: 20141124
  Receipt Date: 20141201
  Transmission Date: 20150529
  Serious: Yes (Hospitalization)
  Sender: FDA-Public Use
  Company Number: FR-009507513-1411FRA010827

PATIENT
  Age: 51 Year
  Sex: Female

DRUGS (2)
  1. LOVENOX [Suspect]
     Active Substance: ENOXAPARIN SODIUM
     Indication: MITRAL VALVE REPLACEMENT
     Dosage: UNKNOWN (1 DOSE FORM, 1 IN 1 TOTAL)
     Route: 058
     Dates: start: 20141104, end: 20141104
  2. ORGARAN [Suspect]
     Active Substance: DANAPAROID SODIUM
     Indication: HEPARIN-INDUCED THROMBOCYTOPENIA
     Dosage: THE DOSAGE WAS BASED ON PROTOCOL (UNKNOWN)
     Route: 058
     Dates: start: 20141104, end: 20141104

REACTIONS (3)
  - Incision site haemorrhage [Recovering/Resolving]
  - Incision site haematoma [Recovering/Resolving]
  - Haemorrhagic anaemia [Not Recovered/Not Resolved]

NARRATIVE: CASE EVENT DATE: 20141104
